FAERS Safety Report 20575257 (Version 1)
Quarter: 2022Q1

REPORT INFORMATION
  Report Type: Spontaneous
  Country: CN (occurrence: CN)
  Receive Date: 20220310
  Receipt Date: 20220310
  Transmission Date: 20220423
  Serious: Yes (Other)
  Sender: FDA-Public Use
  Company Number: CN-BAYER-2022A034935

PATIENT
  Age: 100 Year
  Sex: Male
  Weight: 65 kg

DRUGS (1)
  1. XARELTO [Suspect]
     Active Substance: RIVAROXABAN
     Indication: Atrial fibrillation
     Dosage: 2.5 MG, BID
     Route: 048
     Dates: start: 20210630, end: 20210708

REACTIONS (5)
  - Leukopenia [Recovered/Resolved]
  - Prescribed underdose [Unknown]
  - Underdose [Unknown]
  - Incorrect dosage administered [Unknown]
  - Product prescribing issue [Unknown]

NARRATIVE: CASE EVENT DATE: 20210630
